FAERS Safety Report 5299488-6 (Version None)
Quarter: 2007Q2

REPORT INFORMATION
  Report Type: 
  Country: None (occurrence: None)
  Receive Date: 20070417
  Receipt Date: 20070406
  Transmission Date: 20071010
  Serious: Yes (Hospitalization)
  Sender: FDA-Public Use
  Company Number: US-KINGPHARMUSA00001-K200700430

PATIENT

DRUGS (6)
  1. SONATA [Suspect]
     Dosage: 50 TO 100 MG, SINGLE
     Route: 048
     Dates: start: 20070403, end: 20070403
  2. ALCOHOL  /00002101/ [Suspect]
     Dosage: UNK, SINGLE
     Route: 048
     Dates: start: 20070403, end: 20070403
  3. APONAL [Suspect]
     Dosage: 3 CAPSULES, SINGLE
     Route: 048
     Dates: start: 20070403, end: 20070403
  4. LITHIUM CARBONATE [Suspect]
     Dosage: 42 TABLETS, SINGLE
     Route: 048
     Dates: start: 20070403, end: 20070403
  5. PARACETAMOL [Suspect]
     Dosage: 7500 MG, SINGLE
     Route: 048
     Dates: start: 20070403, end: 20070403
  6. SEROQUEL [Suspect]
     Dosage: 11000 MG, SINGLE
     Route: 048
     Dates: start: 20070403, end: 20070403

REACTIONS (6)
  - CARDIOVASCULAR INSUFFICIENCY [None]
  - HYPOTENSION [None]
  - HYPOTHERMIA [None]
  - MULTIPLE DRUG OVERDOSE [None]
  - SOPOR [None]
  - TACHYCARDIA [None]
